FAERS Safety Report 7429067-3 (Version None)
Quarter: 2011Q2

REPORT INFORMATION
  Report Type: 
  Country: None (occurrence: None)
  Receive Date: 20110421
  Receipt Date: 20110413
  Transmission Date: 20111010
  Serious: Yes (Other)
  Sender: FDA-Public Use
  Company Number: US-ROCHE-771265

PATIENT
  Sex: Male
  Weight: 83.9 kg

DRUGS (8)
  1. ZANTAC [Concomitant]
  2. ASPIRIN [Concomitant]
  3. CELLCEPT [Suspect]
     Route: 048
     Dates: start: 20000320
  4. PROGRAF [Concomitant]
  5. ALLOPURINOL [Concomitant]
  6. COREG [Concomitant]
  7. FUROSEMIDE [Concomitant]
  8. PLAVIX [Concomitant]

REACTIONS (1)
  - MYOCARDIAL INFARCTION [None]
